FAERS Safety Report 8182247 (Version 3)
Quarter: 2012Q4

REPORT INFORMATION
  Report Type: 
  Country: US (occurrence: US)
  Receive Date: 20111014
  Receipt Date: 20121012
  Transmission Date: 20130627
  Serious: Yes (Hospitalization, Other)
  Sender: FDA-Public Use
  Company Number: US-AMGEN-USASP2011051623

PATIENT
  Age: 29 Year
  Sex: Male
  Weight: 76.19 kg

DRUGS (2)
  1. NPLATE [Suspect]
     Indication: IDIOPATHIC THROMBOCYTOPENIC PURPURA
     Dosage: 385.5 mug, qwk
     Route: 058
     Dates: start: 20110325, end: 20110621
  2. ZANTAC [Concomitant]
     Dosage: 150 mg, UNK
     Route: 048

REACTIONS (3)
  - Therapeutic response decreased [Recovered/Resolved]
  - Platelet count decreased [Recovered/Resolved]
  - Bone pain [Unknown]
